FAERS Safety Report 6483402-1 (Version None)
Quarter: 2009Q4

REPORT INFORMATION
  Report Type: 
  Country: None (occurrence: None)
  Receive Date: 20091209
  Receipt Date: 20091130
  Transmission Date: 20100525
  Serious: Yes (Other)
  Sender: FDA-Public Use
  Company Number: JP-SANOFI-AVENTIS-2009SA005149

PATIENT
  Age: 55 Year
  Sex: Male
  Weight: 69 kg

DRUGS (2)
  1. CLEXANE [Suspect]
     Indication: THROMBOSIS PROPHYLAXIS
     Route: 058
     Dates: start: 20091022, end: 20091026
  2. PENTCILLIN [Concomitant]
     Indication: PROPHYLAXIS
     Route: 041
     Dates: start: 20091021, end: 20091023

REACTIONS (3)
  - BLOOD BILIRUBIN INCREASED [None]
  - JAUNDICE [None]
  - TRANSAMINASES INCREASED [None]
